FAERS Safety Report 6245658-X (Version None)
Quarter: 2009Q2

REPORT INFORMATION
  Report Type: 
  Country: None (occurrence: None)
  Receive Date: 20090625
  Receipt Date: 20090618
  Transmission Date: 20091009
  Serious: Yes (Life-Threatening)
  Sender: FDA-Public Use
  Company Number: JP-ABBOTT-09P-087-0581451-00

PATIENT
  Sex: Male

DRUGS (11)
  1. RITONAVIR [Suspect]
     Indication: HIV INFECTION
     Route: 048
     Dates: start: 20060304
  2. REYATAZ [Concomitant]
     Indication: HIV INFECTION
     Route: 048
     Dates: start: 20060314
  3. RETROVIR [Concomitant]
     Indication: HIV INFECTION
     Route: 048
     Dates: start: 20050401
  4. EPIVIR [Concomitant]
     Indication: HIV INFECTION
     Route: 048
     Dates: start: 20050401
  5. ASPIRIN [Concomitant]
     Indication: DRUG USE FOR UNKNOWN INDICATION
     Route: 048
     Dates: start: 20060215
  6. PANALDINE [Concomitant]
     Indication: DRUG USE FOR UNKNOWN INDICATION
     Dates: start: 20060215, end: 20081015
  7. PLETAL [Concomitant]
     Indication: DRUG USE FOR UNKNOWN INDICATION
     Route: 048
     Dates: start: 20060215, end: 20081015
  8. WARFARIN POTASSIUM [Concomitant]
     Indication: DRUG USE FOR UNKNOWN INDICATION
     Dates: start: 20060215, end: 20081015
  9. ARTIST [Concomitant]
     Indication: DRUG USE FOR UNKNOWN INDICATION
     Dates: start: 20060215
  10. DIOVAN [Concomitant]
     Indication: DRUG USE FOR UNKNOWN INDICATION
     Dates: start: 20060215
  11. GASTER D [Concomitant]
     Indication: DRUG USE FOR UNKNOWN INDICATION
     Dates: start: 20060215

REACTIONS (1)
  - MYOCARDIAL INFARCTION [None]
